FAERS Safety Report 9781334 (Version 1)
Quarter: 2013Q4

REPORT INFORMATION
  Report Type: Report from Study
  Country: US (occurrence: US)
  Receive Date: 20131224
  Receipt Date: 20131224
  Transmission Date: 20140711
  Serious: Yes (Hospitalization)
  Sender: FDA-Public Use
  Company Number: US-EXELIXIS-XL18413003778

PATIENT
  Age: 54 Year
  Sex: Female
  Weight: 58.2 kg

DRUGS (15)
  1. XL184 [Suspect]
     Indication: PANCREATIC NEUROENDOCRINE TUMOUR METASTATIC
     Dosage: 40 MG, QD
     Route: 048
     Dates: start: 20130702, end: 20131210
  2. BISCODYL [Concomitant]
  3. BUPROPION HCL [Concomitant]
  4. COLACE [Concomitant]
  5. GABAPENTIN [Concomitant]
  6. GAS-X [Concomitant]
  7. LACTULOSE [Concomitant]
  8. LASIX [Concomitant]
  9. LORAZEPAM [Concomitant]
  10. OMEPRAZOLE [Concomitant]
  11. ONDANSETRON [Concomitant]
  12. POLYETHYLENE GLYCOL [Concomitant]
  13. PROCHLORPERAZINE MALEATE [Concomitant]
  14. SENNOSIDE [Concomitant]
  15. ZYPREXA [Concomitant]

REACTIONS (2)
  - Mental status changes [Unknown]
  - Liver function test abnormal [Unknown]
